FAERS Safety Report 6322325-5 (Version None)
Quarter: 2009Q3

REPORT INFORMATION
  Report Type: 
  Country: None (occurrence: None)
  Receive Date: 20090821
  Receipt Date: 20090821
  Transmission Date: 20100115
  Serious: Yes (Hospitalization)
  Sender: FDA-Public Use
  Company Number: None

PATIENT
  Sex: Male
  Weight: 72.6 kg

DRUGS (4)
  1. CARBOPLATIN [Suspect]
     Dosage: 2720 MG
  2. ETOPOSIDE [Suspect]
     Dosage: 2160 MG
  3. G-CSF (FILGRASTIM, AMGEN) [Suspect]
     Dosage: 11.555 MG
  4. MELPHALAN [Suspect]
     Dosage: 336 MG

REACTIONS (20)
  - BLOOD CULTURE POSITIVE [None]
  - CANDIDIASIS [None]
  - CONTINUOUS HAEMODIAFILTRATION [None]
  - DISSEMINATED INTRAVASCULAR COAGULATION [None]
  - ENTEROCOCCAL INFECTION [None]
  - FLUID OVERLOAD [None]
  - FUNGAEMIA [None]
  - HAEMODYNAMIC INSTABILITY [None]
  - HAEMORRHAGE [None]
  - HYPERTENSION [None]
  - HYPOTENSION [None]
  - POST PROCEDURAL COMPLICATION [None]
  - PULMONARY HAEMORRHAGE [None]
  - PULMONARY OEDEMA [None]
  - PULSE ABSENT [None]
  - RENAL FAILURE ACUTE [None]
  - RESPIRATORY ARREST [None]
  - RESPIRATORY FAILURE [None]
  - SEPTIC SHOCK [None]
  - WEANING FAILURE [None]
